FAERS Safety Report 25146343 (Version 1)
Quarter: 2025Q2

REPORT INFORMATION
  Report Type: Spontaneous
  Country: PL (occurrence: PL)
  Receive Date: 20250401
  Receipt Date: 20250401
  Transmission Date: 20250716
  Serious: Yes (Other)
  Sender: MYLAN
  Company Number: PL-MYLANLABS-2025M1027089

PATIENT
  Age: 39 Year
  Sex: Female

DRUGS (4)
  1. TELMISARTAN [Suspect]
     Active Substance: TELMISARTAN
     Indication: Hypertension
     Dosage: 40 MILLIGRAM, QD
  2. NEBIVOLOL [Suspect]
     Active Substance: NEBIVOLOL
     Indication: Hypertension
     Dosage: 5 MILLIGRAM, QD
  3. NEBIVOLOL [Suspect]
     Active Substance: NEBIVOLOL
  4. LERCANIDIPINE [Suspect]
     Active Substance: LERCANIDIPINE
     Indication: Hypertension
     Dosage: 20 MILLIGRAM, QD

REACTIONS (1)
  - Drug ineffective [Unknown]
